FAERS Safety Report 24997667 (Version 2)
Quarter: 2025Q1

REPORT INFORMATION
  Report Type: Spontaneous
  Country: CN (occurrence: CN)
  Receive Date: 20250222
  Receipt Date: 20250305
  Transmission Date: 20250409
  Serious: Yes (Hospitalization, Other)
  Sender: ABBVIE
  Company Number: CN-ABBVIE-6141429

PATIENT
  Age: 61 Year
  Sex: Male
  Weight: 70 kg

DRUGS (2)
  1. VENCLEXTA [Suspect]
     Active Substance: VENETOCLAX
     Indication: Chemotherapy
     Dosage: VENETOCLAX TABLETS 400 MG PO QD (D1-14)
     Route: 048
     Dates: start: 20241217, end: 20241230
  2. AZACITIDINE [Suspect]
     Active Substance: AZACITIDINE
     Indication: Myelodysplastic syndrome
     Dosage: AZACITIDINE FOR INJECTION 130 MG + STERILE WATER FOR INJECTION 5.2ML IH QD (D1-7)
     Route: 058
     Dates: start: 20241217, end: 20241223

REACTIONS (2)
  - Myelodysplastic syndrome [Recovering/Resolving]
  - Myelosuppression [Recovering/Resolving]

NARRATIVE: CASE EVENT DATE: 20250113
